FAERS Safety Report 7970010-6 (Version None)
Quarter: 2011Q4

REPORT INFORMATION
  Report Type: 
  Country: None (occurrence: None)
  Receive Date: 20111212
  Receipt Date: 20111201
  Transmission Date: 20120403
  Serious: Yes (Hospitalization)
  Sender: FDA-Public Use
  Company Number: BR-US-EMD SERONO, INC.-7095141

PATIENT
  Sex: Female

DRUGS (3)
  1. ACETAMINOPHEN [Concomitant]
  2. REBIF [Suspect]
     Indication: RELAPSING-REMITTING MULTIPLE SCLEROSIS
     Dates: start: 20110221
  3. YAZ [Concomitant]
     Indication: CONTRACEPTION

REACTIONS (6)
  - MOOD ALTERED [None]
  - INJECTION SITE NODULE [None]
  - INJECTION SITE ERYTHEMA [None]
  - INJECTION SITE PRURITUS [None]
  - INJECTION SITE PAIN [None]
  - CENTRAL NERVOUS SYSTEM LESION [None]
